FAERS Safety Report 8138922-0 (Version None)
Quarter: 2012Q1

REPORT INFORMATION
  Report Type: 
  Country: None (occurrence: None)
  Receive Date: 20120215
  Receipt Date: 20120214
  Transmission Date: 20120608
  Serious: Yes (Life-Threatening, Hospitalization)
  Sender: FDA-Public Use
  Company Number: US-B.I. PHARMACEUTICALS,INC./RIDGEFIELD-2012-BP-01777BP

PATIENT
  Sex: Female
  Weight: 40.82 kg

DRUGS (7)
  1. PRADAXA [Suspect]
     Indication: ATRIAL FIBRILLATION
     Dosage: 150 MG
     Route: 048
     Dates: start: 20110401, end: 20120127
  2. TEMAZEPAM [Concomitant]
     Indication: SLEEP DISORDER
     Dosage: 30 MG
  3. LEXAPRO [Concomitant]
     Indication: DEPRESSION
  4. MORPHINE [Concomitant]
     Indication: PAIN
  5. LIPITOR [Concomitant]
     Indication: HYPERLIPIDAEMIA
  6. DIGOXIN [Concomitant]
     Indication: ATRIAL FIBRILLATION
     Dosage: 0.125 MG
  7. METOCLOPRAMIDE [Concomitant]
     Indication: ATRIAL FIBRILLATION

REACTIONS (1)
  - HEPATITIS FULMINANT [None]
